FAERS Safety Report 25388649 (Version 3)
Quarter: 2025Q3

REPORT INFORMATION
  Report Type: Report from Study
  Country: KR (occurrence: KR)
  Receive Date: 20250603
  Receipt Date: 20250725
  Transmission Date: 20251021
  Serious: Yes (Life-Threatening)
  Sender: ROCHE
  Company Number: KR-ROCHE-10000299978

PATIENT
  Age: 51 Year
  Sex: Female
  Weight: 51.3 kg

DRUGS (36)
  1. GLOFITAMAB [Suspect]
     Active Substance: GLOFITAMAB
     Indication: Diffuse large B-cell lymphoma refractory
     Route: 042
     Dates: start: 20250528, end: 20250528
  2. GLOFITAMAB [Suspect]
     Active Substance: GLOFITAMAB
     Route: 042
  3. PROPACETAMOL HYDROCHLORIDE [Concomitant]
     Active Substance: PROPACETAMOL HYDROCHLORIDE
     Indication: Pyrexia
     Route: 042
     Dates: start: 20250703, end: 20250703
  4. PROPACETAMOL HYDROCHLORIDE [Concomitant]
     Active Substance: PROPACETAMOL HYDROCHLORIDE
     Route: 042
     Dates: start: 20250529, end: 20250529
  5. PROPACETAMOL HYDROCHLORIDE [Concomitant]
     Active Substance: PROPACETAMOL HYDROCHLORIDE
     Route: 042
     Dates: start: 20250705, end: 20250706
  6. BARACLUDE TAB 0.5 mg [Concomitant]
     Indication: Hepatitis B
     Route: 048
     Dates: start: 20250228
  7. Dexamethasone Inj [Concomitant]
     Route: 042
     Dates: start: 20250528, end: 20250528
  8. KEPPRA INJ [Concomitant]
     Indication: Seizure
     Route: 042
     Dates: start: 20250523
  9. MORPHINE SULFATE INJ [Concomitant]
     Route: 042
     Dates: start: 20250527, end: 20250527
  10. PENIRAMIN INJ [Concomitant]
     Route: 042
     Dates: start: 20250528, end: 20250528
  11. SMOFKABIVEN PERIPHERAL  INJ 1206m [Concomitant]
     Indication: Hypophagia
     Route: 042
     Dates: start: 20250527
  12. TAMIPOOL INJ [Concomitant]
     Indication: Hypophagia
     Route: 042
     Dates: start: 20250516
  13. TYLENOL 8HOURS ER TAB 650mg [Concomitant]
     Route: 048
     Dates: start: 20250528, end: 20250528
  14. TYLICOL INJ [Concomitant]
     Indication: Pyrexia
     Route: 042
     Dates: start: 20250528, end: 20250528
  15. TYLICOL INJ [Concomitant]
     Route: 042
     Dates: start: 20250529, end: 20250529
  16. TYLICOL INJ [Concomitant]
     Dates: start: 20250704, end: 20250706
  17. TYLICOL INJ [Concomitant]
     Dates: start: 20250719, end: 20250719
  18. Spucle Soln(NaCl) [Concomitant]
     Route: 042
     Dates: start: 20250529
  19. GAZYVA [Concomitant]
     Active Substance: OBINUTUZUMAB
     Indication: Premedication
     Route: 042
     Dates: start: 20250521, end: 20250521
  20. TOCILIZUMAB [Concomitant]
     Active Substance: TOCILIZUMAB
     Dates: start: 20250530, end: 20250530
  21. ALBUMIN HUMAN [Concomitant]
     Active Substance: ALBUMIN HUMAN
     Dates: start: 20250610, end: 20250610
  22. ALBUMIN HUMAN [Concomitant]
     Active Substance: ALBUMIN HUMAN
     Dates: start: 20250529, end: 20250529
  23. ALBUMIN HUMAN [Concomitant]
     Active Substance: ALBUMIN HUMAN
     Dates: start: 20250602, end: 20250602
  24. ALBUMIN HUMAN [Concomitant]
     Active Substance: ALBUMIN HUMAN
     Dates: start: 20250607, end: 20250607
  25. ALBUMIN HUMAN [Concomitant]
     Active Substance: ALBUMIN HUMAN
     Dates: start: 20250707, end: 20250707
  26. ALBUMIN HUMAN [Concomitant]
     Active Substance: ALBUMIN HUMAN
     Dates: start: 20250711, end: 20250711
  27. ALBUMIN HUMAN [Concomitant]
     Active Substance: ALBUMIN HUMAN
     Dates: start: 20250718, end: 20250718
  28. TAZOPERAN [Concomitant]
     Dates: start: 20250529, end: 20250611
  29. TRANEXAMIC ACID [Concomitant]
     Active Substance: TRANEXAMIC ACID
     Dates: start: 20250530, end: 20250613
  30. METRONIDAZOLE [Concomitant]
     Active Substance: METRONIDAZOLE
     Route: 042
     Dates: start: 20250530, end: 20250613
  31. Vancozin [Concomitant]
  32. HEPARIN SODIUM [Concomitant]
     Active Substance: HEPARIN SODIUM
     Dates: start: 20250703, end: 20250703
  33. PIPERACILLIN SODIUM\TAZOBACTAM SODIUM [Concomitant]
     Active Substance: PIPERACILLIN SODIUM\TAZOBACTAM SODIUM
     Dates: start: 20250707, end: 20250713
  34. ULTRACET [Concomitant]
     Active Substance: ACETAMINOPHEN\TRAMADOL HYDROCHLORIDE
     Dates: start: 20250718, end: 20250719
  35. Uricaine [Concomitant]
     Dates: start: 20250707, end: 20250707
  36. Uricaine [Concomitant]
     Dates: start: 20250704, end: 20250704

REACTIONS (3)
  - Brain oedema [Not Recovered/Not Resolved]
  - Cytomegalovirus viraemia [Recovered/Resolved]
  - Pyrexia [Recovered/Resolved]

NARRATIVE: CASE EVENT DATE: 20250529
